FAERS Safety Report 17782658 (Version 1)
Quarter: 2020Q2

REPORT INFORMATION
  Report Type: Spontaneous
  Country: CA (occurrence: CA)
  Receive Date: 20200514
  Receipt Date: 20200514
  Transmission Date: 20200714
  Serious: Yes (Other)
  Sender: FDA-Public Use
  Company Number: CA-APOTEX-2020AP010826

PATIENT
  Age: 25 Year
  Sex: Male

DRUGS (4)
  1. SEROQUEL [Concomitant]
     Active Substance: QUETIAPINE FUMARATE
     Indication: MAJOR DEPRESSION
     Dosage: UNK, QD
     Route: 048
  2. NICOTINE. [Suspect]
     Active Substance: NICOTINE
     Indication: SMOKING CESSATION THERAPY
     Dosage: 8 DF, QD
     Route: 048
  3. NICOTINE TRANSDERMAL SYSTEM, 21 MG/DAY [Suspect]
     Active Substance: NICOTINE
     Indication: SMOKING CESSATION THERAPY
     Dosage: UNK, QD
     Route: 062
     Dates: start: 20200425, end: 20200506
  4. SEROQUEL [Concomitant]
     Active Substance: QUETIAPINE FUMARATE
     Indication: DEPRESSION

REACTIONS (10)
  - Psychotic disorder [Recovered/Resolved]
  - Cardiac flutter [Recovered/Resolved]
  - Feeling abnormal [Recovered/Resolved]
  - Dyspnoea [Recovered/Resolved]
  - Product dose omission [Unknown]
  - Delusion [Recovered/Resolved]
  - Heart sounds abnormal [Recovered/Resolved]
  - Hallucination [Recovered/Resolved]
  - Tremor [Unknown]
  - Anger [Recovered/Resolved]

NARRATIVE: CASE EVENT DATE: 20200502
